FAERS Safety Report 25626072 (Version 1)
Quarter: 2025Q3

REPORT INFORMATION
  Report Type: Spontaneous
  Country: EU (occurrence: EU)
  Receive Date: 20250731
  Receipt Date: 20250731
  Transmission Date: 20251021
  Serious: Yes (Other)
  Sender: AMGEN
  Company Number: EU-AMGEN-ITASP2025147825

PATIENT

DRUGS (1)
  1. ADALIMUMAB [Suspect]
     Active Substance: ADALIMUMAB
     Indication: Inflammatory bowel disease
     Route: 065

REACTIONS (5)
  - Inflammatory bowel disease [Unknown]
  - Lip swelling [Unknown]
  - Noninfective gingivitis [Unknown]
  - Oral disorder [Unknown]
  - Aphthous ulcer [Unknown]
